FAERS Safety Report 8300325-3 (Version None)
Quarter: 2012Q2

REPORT INFORMATION
  Report Type: 
  Country: None (occurrence: None)
  Receive Date: 20120420
  Receipt Date: 20120411
  Transmission Date: 20120825
  Serious: Yes (Hospitalization)
  Sender: FDA-Public Use
  Company Number: US-BAYER-2011-011850

PATIENT
  Age: 40 Year
  Sex: Female
  Weight: 54.422 kg

DRUGS (12)
  1. EFFEXOR [Concomitant]
     Indication: ANTIDEPRESSANT THERAPY
     Dosage: 150 MG, QD
     Route: 048
     Dates: start: 20050101, end: 20090101
  2. ZOLOFT [Concomitant]
     Indication: ANXIETY
  3. ALLEGRA [Concomitant]
     Indication: SEASONAL ALLERGY
     Route: 048
  4. YASMIN [Suspect]
     Dosage: UNK
     Dates: start: 20030101, end: 20090316
  5. ASPIRIN [Concomitant]
     Dosage: UNK
     Dates: start: 20090101
  6. SYNTHROID [Concomitant]
  7. LEVOXYL [Concomitant]
     Indication: HYPOTHYROIDISM
     Route: 048
  8. EFFEXOR [Concomitant]
     Indication: ANXIETY
  9. LEVOTHYROXINE SODIUM [Concomitant]
     Indication: HYPOTHYROIDISM
     Dosage: UNK
     Dates: start: 20030101
  10. ZOLOFT [Concomitant]
     Indication: ANTIDEPRESSANT THERAPY
     Dosage: UNK
     Dates: start: 20090101
  11. LIPITOR [Concomitant]
  12. LEVAQUIN [Concomitant]
     Indication: INFECTION
     Dosage: 250 MG, QD
     Route: 048

REACTIONS (3)
  - ACUTE MYOCARDIAL INFARCTION [None]
  - CHEST PAIN [None]
  - MYOCARDIAL INFARCTION [None]
